FAERS Safety Report 6210060-3 (Version None)
Quarter: 2009Q2

REPORT INFORMATION
  Report Type: 
  Country: None (occurrence: None)
  Receive Date: 20090601
  Receipt Date: 20090521
  Transmission Date: 20091009
  Serious: Yes (Other)
  Sender: FDA-Public Use
  Company Number: US-PFIZER INC-2005120979

PATIENT
  Sex: Female
  Weight: 61.22 kg

DRUGS (9)
  1. PROVERA [Suspect]
     Indication: HORMONE REPLACEMENT THERAPY
     Dosage: UNK
     Route: 048
     Dates: start: 19900101, end: 20000101
  2. PROVERA [Suspect]
     Indication: MENOPAUSE
  3. PREMARIN [Suspect]
     Indication: HORMONE REPLACEMENT THERAPY
     Route: 048
     Dates: start: 19820101, end: 20000101
  4. PREMARIN [Suspect]
     Indication: MENOPAUSE
  5. SYNTHROID [Concomitant]
     Indication: HYPOPITUITARISM
     Dosage: UNK
     Dates: start: 19830101
  6. ROCALTROL [Concomitant]
     Indication: VITAMIN D
     Dosage: UNK
     Dates: start: 19900101
  7. HYDROCORTISONE [Concomitant]
     Indication: HYPERTENSION
     Dosage: UNK
     Dates: start: 19900101
  8. LOZOL [Concomitant]
     Indication: HYPERTENSION
     Dosage: UNK
     Dates: start: 19970101
  9. AVAPRO [Concomitant]
     Indication: HYPERTENSION
     Dosage: UNK
     Dates: start: 19970101

REACTIONS (1)
  - BREAST CANCER [None]
